FAERS Safety Report 5454121-5 (Version None)
Quarter: 2007Q3

REPORT INFORMATION
  Report Type: 
  Country: None (occurrence: None)
  Receive Date: 20070917
  Receipt Date: 20070709
  Transmission Date: 20080115
  Serious: Yes (Other)
  Sender: FDA-Public Use
  Company Number: US-ASTRAZENECA-2006UW10074

PATIENT
  Age: 449 Month
  Sex: Female

DRUGS (3)
  1. SEROQUEL [Suspect]
     Route: 048
  2. RISPERDAL [Suspect]
     Indication: DEPRESSION
     Dates: start: 20000101, end: 20040701
  3. RISPERDAL [Suspect]
     Indication: SLEEP DISORDER
     Dates: start: 20000101, end: 20040701

REACTIONS (1)
  - PANCREATITIS [None]
